FAERS Safety Report 7625287-3 (Version None)
Quarter: 2011Q3

REPORT INFORMATION
  Report Type: 
  Country: None (occurrence: None)
  Receive Date: 20110721
  Receipt Date: 20110718
  Transmission Date: 20111222
  Serious: No
  Sender: FDA-Public Use
  Company Number: US-PFIZER INC-2011163296

PATIENT
  Sex: Male

DRUGS (2)
  1. EFFEXOR [Concomitant]
     Indication: DEPRESSION
     Dosage: UNK
  2. CHANTIX [Suspect]
     Indication: SMOKING CESSATION THERAPY
     Dosage: 0.5 MG, 1X/DAY
     Route: 048
     Dates: start: 20110331, end: 20110701

REACTIONS (3)
  - FATIGUE [None]
  - HYPERSOMNIA [None]
  - NIGHTMARE [None]
